FAERS Safety Report 16868915 (Version 1)
Quarter: 2019Q3

REPORT INFORMATION
  Report Type: Spontaneous
  Country: US (occurrence: US)
  Receive Date: 20190930
  Receipt Date: 20190930
  Transmission Date: 20191005
  Serious: Yes (Hospitalization)
  Sender: FDA-Public Use
  Company Number: US-TEVA-2019-US-1115127

PATIENT
  Age: 90 Year
  Sex: Female

DRUGS (3)
  1. GENERIC SYNTHROID [Concomitant]
     Active Substance: LEVOTHYROXINE SODIUM
  2. PRAVASTATIN SODIUM. [Suspect]
     Active Substance: PRAVASTATIN SODIUM
     Route: 048
  3. LISINOPRIL. [Concomitant]
     Active Substance: LISINOPRIL

REACTIONS (8)
  - Decreased appetite [Recovered/Resolved]
  - Weight decreased [Unknown]
  - Musculoskeletal stiffness [Unknown]
  - Cough [Unknown]
  - Hospitalisation [Unknown]
  - Nasopharyngitis [Unknown]
  - Arthralgia [Unknown]
  - Chest pain [Unknown]
